FAERS Safety Report 5019756-2 (Version None)
Quarter: 2006Q2

REPORT INFORMATION
  Report Type: 
  Country: None (occurrence: None)
  Receive Date: 20060607
  Receipt Date: 20060524
  Transmission Date: 20061013
  Serious: Yes (Hospitalization)
  Sender: FDA-Public Use
  Company Number: JP-NOVOPROD-253674

PATIENT
  Age: 25 Year
  Sex: Female
  Weight: 51 kg

DRUGS (4)
  1. ESTRADERM [Concomitant]
  2. NORLUTEN D [Concomitant]
  3. PREMARIN                           /00073001/ [Concomitant]
  4. NORDITROPIN NORDIFLEX [Suspect]
     Indication: TURNER'S SYNDROME
     Dosage: .5 U/KG/WEEK
     Route: 058
     Dates: start: 19951018, end: 19980831

REACTIONS (1)
  - GASTRIC CANCER [None]
